FAERS Safety Report 21922941 (Version 7)
Quarter: 2023Q2

REPORT INFORMATION
  Report Type: Report from Study
  Country: FR (occurrence: FR)
  Receive Date: 20230128
  Receipt Date: 20230414
  Transmission Date: 20230721
  Serious: Yes (Life-Threatening, Hospitalization, Other)
  Sender: FDA-Public Use
  Company Number: FR-AMGEN-FRACT2023010743

PATIENT
  Age: 62 Year
  Sex: Female
  Weight: 52 kg

DRUGS (10)
  1. CARFILZOMIB [Suspect]
     Active Substance: CARFILZOMIB
     Indication: Plasma cell myeloma
     Dosage: 20 MILLIGRAM/SQ. METER, PER CHEMO REGIM
     Route: 040
     Dates: start: 20221221
  2. CARFILZOMIB [Suspect]
     Active Substance: CARFILZOMIB
     Dosage: 56 MILLIGRAM/SQ. METER, PER CHEMO REGIM
     Route: 040
  3. ISATUXIMAB [Suspect]
     Active Substance: ISATUXIMAB
     Indication: Plasma cell myeloma
     Dosage: 520 MILLIGRAM, PER CHEMO REGIM
     Route: 040
     Dates: start: 20221221
  4. ISATUXIMAB [Suspect]
     Active Substance: ISATUXIMAB
     Dosage: 500 MILLIGRAM, PER CHEMO REGIM
     Route: 040
  5. ISATUXIMAB [Suspect]
     Active Substance: ISATUXIMAB
     Dosage: 100 MILLIGRAM, PER CHEMO REGIM
     Route: 040
  6. ISATUXIMAB [Suspect]
     Active Substance: ISATUXIMAB
     Dosage: 100 MILLIGRAM, PER CHEMO REGIM
     Route: 040
  7. ISATUXIMAB [Suspect]
     Active Substance: ISATUXIMAB
     Dosage: 10 MILLIGRAM/KILOGRAM, PER CHEMO REGIM
     Route: 042
  8. ISATUXIMAB [Suspect]
     Active Substance: ISATUXIMAB
     Dosage: 550 MILLIGRAM, PER CHEMO REGIM
     Route: 042
  9. DEXAMETHASONE [Suspect]
     Active Substance: DEXAMETHASONE
     Indication: Plasma cell myeloma
     Dosage: 40 MILLIGRAM, PER CHEMO REGIM
     Route: 048
     Dates: start: 20221221
  10. LENALIDOMIDE [Suspect]
     Active Substance: LENALIDOMIDE
     Indication: Plasma cell myeloma
     Dosage: 25 MILLIGRAM, PER CHEMO REGIM
     Route: 048
     Dates: start: 20221221

REACTIONS (5)
  - Diabetes mellitus [Recovered/Resolved]
  - Hypersensitivity [Recovered/Resolved]
  - Infection [Recovered/Resolved]
  - Septic shock [Recovered/Resolved]
  - General physical health deterioration [Recovered/Resolved]

NARRATIVE: CASE EVENT DATE: 20230113
